FAERS Safety Report 6083113-0 (Version None)
Quarter: 2009Q1

REPORT INFORMATION
  Report Type: 
  Country: None (occurrence: None)
  Receive Date: 20090217
  Receipt Date: 20090217
  Transmission Date: 20090719
  Serious: No
  Sender: FDA-Public Use
  Company Number: None

PATIENT
  Sex: Female
  Weight: 72.1219 kg

DRUGS (1)
  1. INFUSE BONE GRAFT MBP 2 MEDTRONIC [Suspect]
     Indication: INTERVERTEBRAL DISC PROTRUSION
     Dates: start: 20060624, end: 20090213

REACTIONS (3)
  - IMPAIRED WORK ABILITY [None]
  - PROCEDURAL PAIN [None]
  - PRODUCT QUALITY ISSUE [None]
